FAERS Safety Report 8459833-7 (Version None)
Quarter: 2012Q2

REPORT INFORMATION
  Report Type: 
  Country: None (occurrence: None)
  Receive Date: 20120622
  Receipt Date: 20120618
  Transmission Date: 20120825
  Serious: Yes (Other)
  Sender: FDA-Public Use
  Company Number: PHHY2011US61582

PATIENT
  Sex: Female

DRUGS (3)
  1. TASIGNA [Suspect]
     Indication: CHRONIC MYELOID LEUKAEMIA
     Dosage: 300 MG, BID
     Route: 048
     Dates: start: 20110316
  2. PRILOSEC [Concomitant]
     Dosage: UNK UKN, UNK
  3. ZANTAC [Concomitant]
     Dosage: UNK UKN, UNK

REACTIONS (16)
  - LUNG DISORDER [None]
  - GASTROOESOPHAGEAL REFLUX DISEASE [None]
  - GENERALISED ERYTHEMA [None]
  - PHARYNGITIS STREPTOCOCCAL [None]
  - DIZZINESS [None]
  - PRURITUS GENERALISED [None]
  - SKIN IRRITATION [None]
  - PHOTOSENSITIVITY REACTION [None]
  - VITAMIN D DECREASED [None]
  - DECREASED APPETITE [None]
  - MUSCULAR WEAKNESS [None]
  - BODY TEMPERATURE FLUCTUATION [None]
  - HEADACHE [None]
  - FATIGUE [None]
  - NAUSEA [None]
  - MYALGIA [None]
